FAERS Safety Report 22041075 (Version 1)
Quarter: 2023Q1

REPORT INFORMATION
  Report Type: Spontaneous
  Country: US (occurrence: US)
  Receive Date: 20230227
  Receipt Date: 20230227
  Transmission Date: 20230418
  Serious: Yes (Hospitalization, Other)
  Sender: FDA-Public Use
  Company Number: US-BRISTOL-MYERS SQUIBB COMPANY-2023-027945

PATIENT
  Age: 76 Year
  Sex: Male

DRUGS (2)
  1. ELIQUIS [Suspect]
     Active Substance: APIXABAN
     Indication: Product used for unknown indication
  2. OFEV [Suspect]
     Active Substance: NINTEDANIB
     Indication: Idiopathic pulmonary fibrosis
     Route: 048
     Dates: start: 20221017

REACTIONS (5)
  - Atrial fibrillation [Recovering/Resolving]
  - Urinary tract infection [Recovering/Resolving]
  - Cystitis [Recovering/Resolving]
  - Haematochezia [Unknown]
  - Diarrhoea [Unknown]
